FAERS Safety Report 9834441 (Version 1)
Quarter: 2014Q1

REPORT INFORMATION
  Report Type: Spontaneous
  Country: US (occurrence: US)
  Receive Date: 20140122
  Receipt Date: 20140122
  Transmission Date: 20141002
  Serious: Yes (Other)
  Sender: FDA-Public Use
  Company Number: US-BAYER-2014-007970

PATIENT
  Age: 46 Year
  Sex: Female

DRUGS (1)
  1. MIRENA [Suspect]
     Indication: CONTRACEPTION
     Dosage: 20 MCG/24HR, CONT
     Route: 015
     Dates: start: 20090120

REACTIONS (7)
  - Procedural pain [None]
  - Procedural haemorrhage [None]
  - Presyncope [None]
  - Complication of device insertion [None]
  - Diarrhoea [None]
  - Dyspnoea [None]
  - Dizziness [None]
